FAERS Safety Report 10592312 (Version 4)
Quarter: 2015Q1

REPORT INFORMATION
  Report Type: Spontaneous
  Country: US (occurrence: None)
  Receive Date: 20141117
  Receipt Date: 20150325
  Transmission Date: 20150720
  Serious: Yes (Hospitalization)
  Sender: FDA-Public Use
  Company Number: US-001432

PATIENT
  Sex: Female

DRUGS (5)
  1. SOLUTIONS FOR PARENTERAL NUTRITION [Concomitant]
     Active Substance: AMINO ACIDS\DEXTROSE\ELECTROLYTES NOS
  2. IRON [Concomitant]
     Active Substance: IRON
  3. GATTEX [Suspect]
     Active Substance: TEDUGLUTIDE\WATER
     Indication: SHORT-BOWEL SYNDROME
     Dosage: DF SUBCUTANEOUS?
     Route: 058
     Dates: start: 20131124
  4. CENTRUM SILVER /02363801/ [Concomitant]
     Active Substance: VITAMINS
  5. CITRICAL /00751501/ [Concomitant]

REACTIONS (5)
  - Ovarian cyst [None]
  - Hypokalaemia [None]
  - Neoplasm [None]
  - Gastrointestinal disorder [None]
  - White blood cell count increased [None]

NARRATIVE: CASE EVENT DATE: 2014
